FAERS Safety Report 9384894 (Version 2)
Quarter: 2013Q3

REPORT INFORMATION
  Report Type: Spontaneous
  Country: NL (occurrence: None)
  Receive Date: 20130701
  Receipt Date: 20130815
  Transmission Date: 20140515
  Serious: Yes (Hospitalization)
  Sender: FDA-Public Use
  Company Number: COR_00012_2013

PATIENT
  Age: 42 Year
  Sex: Female

DRUGS (4)
  1. LOMUSTINE [Suspect]
     Indication: GLIOBLASTOMA
     Dosage: (100 MG/M2 QD [FIRST DOSE] ORAL), (DF ORAL)
     Dates: start: 20130227, end: 20130227
  2. BLINDED STUDY DRUG [Suspect]
     Indication: GLIOBLASTOMA
     Dosage: (DF [TWICE DAILY FOR 14 DAYS, THEN 14 DAYS REST; 28-DAY CYCLE] ORAL)
     Dates: start: 20130220
  3. DEXAMETHASONE [Concomitant]
  4. KEPPRA [Concomitant]

REACTIONS (6)
  - Malaise [None]
  - Fatigue [None]
  - Vomiting [None]
  - Weight decreased [None]
  - Malignant neoplasm progression [None]
  - Glioblastoma [None]
